FAERS Safety Report 7611111-1 (Version None)
Quarter: 2011Q3

REPORT INFORMATION
  Report Type: 
  Country: None (occurrence: None)
  Receive Date: 20110715
  Receipt Date: 20110708
  Transmission Date: 20111222
  Serious: Yes (Hospitalization, Other)
  Sender: FDA-Public Use
  Company Number: US-PFIZER INC-2011156000

PATIENT
  Age: 59 Year
  Sex: Male

DRUGS (3)
  1. CELECOXIB [Suspect]
  2. BENAZEPRIL [Concomitant]
     Indication: HYPERTENSION
  3. AMLODIPINE BESILATE [Concomitant]
     Indication: HYPERTENSION

REACTIONS (11)
  - BLOOD ALKALINE PHOSPHATASE INCREASED [None]
  - BLOOD IMMUNOGLOBULIN E INCREASED [None]
  - PYREXIA [None]
  - MYALGIA [None]
  - ALANINE AMINOTRANSFERASE INCREASED [None]
  - HEPATOSPLENOMEGALY [None]
  - EOSINOPHILIA [None]
  - RASH MACULAR [None]
  - DRUG RASH WITH EOSINOPHILIA AND SYSTEMIC SYMPTOMS [None]
  - WHITE BLOOD CELL COUNT INCREASED [None]
  - LYMPH NODES SCAN ABNORMAL [None]
